FAERS Safety Report 25822949 (Version 1)
Quarter: 2025Q3

REPORT INFORMATION
  Report Type: Spontaneous
  Country: US (occurrence: US)
  Receive Date: 20250919
  Receipt Date: 20250919
  Transmission Date: 20251020
  Serious: No
  Sender: BIOGEN
  Company Number: US-BIOGEN-2025BI01324178

PATIENT
  Sex: Female

DRUGS (2)
  1. TECFIDERA [Suspect]
     Active Substance: DIMETHYL FUMARATE
     Indication: Multiple sclerosis
     Route: 050
     Dates: start: 20140113, end: 20201021
  2. TECFIDERA [Suspect]
     Active Substance: DIMETHYL FUMARATE
     Route: 050
     Dates: start: 20130628

REACTIONS (6)
  - Drug ineffective [Unknown]
  - Gait disturbance [Unknown]
  - Impaired driving ability [Unknown]
  - Loss of control of legs [Unknown]
  - Musculoskeletal disorder [Unknown]
  - Cognitive disorder [Unknown]
